FAERS Safety Report 20095806 (Version 1)
Quarter: 2021Q4

REPORT INFORMATION
  Report Type: Spontaneous
  Country: US (occurrence: None)
  Receive Date: 20211119
  Receipt Date: 20211119
  Transmission Date: 20220304
  Serious: No
  Sender: FDA-Public Use
  Company Number: None

PATIENT
  Age: 81 Year
  Sex: Male

DRUGS (1)
  1. ABIRATERONE [Suspect]
     Active Substance: ABIRATERONE
     Dosage: FREQUENCY : DAILY;?
     Route: 048
     Dates: start: 20210927

REACTIONS (5)
  - Neuropathy peripheral [None]
  - Fatigue [None]
  - Fall [None]
  - Skin laceration [None]
  - Skin laceration [None]

NARRATIVE: CASE EVENT DATE: 20211116
